FAERS Safety Report 5916380-1 (Version None)
Quarter: 2008Q4

REPORT INFORMATION
  Report Type: 
  Country: None (occurrence: None)
  Receive Date: 20081013
  Receipt Date: 20081008
  Transmission Date: 20090506
  Serious: Yes (Other)
  Sender: FDA-Public Use
  Company Number: US-ELI_LILLY_AND_COMPANY-US200807000541

PATIENT
  Sex: Male

DRUGS (5)
  1. HUMALOG [Suspect]
     Route: 058
  2. HUMALOG [Suspect]
     Route: 058
  3. HUMALOG [Suspect]
     Dosage: UNK, UNK
     Route: 058
  4. HUMALOG [Suspect]
     Route: 058
  5. HUMALOG [Suspect]
     Dates: start: 20080601

REACTIONS (13)
  - ADVERSE REACTION [None]
  - BACK PAIN [None]
  - BLOOD GLUCOSE INCREASED [None]
  - FALL [None]
  - FEELING ABNORMAL [None]
  - FEELING COLD [None]
  - INFLUENZA LIKE ILLNESS [None]
  - LOSS OF CONSCIOUSNESS [None]
  - LYMPHADENOPATHY [None]
  - PAIN [None]
  - SKELETAL INJURY [None]
  - TREMOR [None]
  - VOMITING [None]
